FAERS Safety Report 5124705-2 (Version None)
Quarter: 2006Q4

REPORT INFORMATION
  Report Type: 
  Country: None (occurrence: None)
  Receive Date: 20061006
  Receipt Date: 20061006
  Transmission Date: 20070319
  Serious: Yes (Hospitalization)
  Sender: FDA-Public Use
  Company Number: None

PATIENT
  Age: 69 Year
  Sex: Male
  Weight: 100.2449 kg

DRUGS (12)
  1. LISINOPRIL [Suspect]
     Indication: HYPERTENSION
     Dosage: 2.5 MG DAILY PO
     Route: 048
     Dates: start: 20060827, end: 20060926
  2. ATENOLOL [Concomitant]
  3. GEMFIBROZIL [Concomitant]
  4. TOPIRAMATE [Concomitant]
  5. POTASSIUM CHLORIDE [Concomitant]
  6. WARFARIN SODIUM [Concomitant]
  7. FUROSEMIDE [Concomitant]
  8. GLYBURIDE [Concomitant]
  9. SIMVASTATIN [Concomitant]
  10. LISINOPRIL [Concomitant]
  11. ASPIRIN [Concomitant]
  12. ROSIGLITAZONE [Concomitant]

REACTIONS (6)
  - AMNESIA [None]
  - ASTHENIA [None]
  - CONFUSIONAL STATE [None]
  - DIARRHOEA [None]
  - HYPOGLYCAEMIA [None]
  - RENAL FAILURE ACUTE [None]
